FAERS Safety Report 19212475 (Version 1)
Quarter: 2021Q2

REPORT INFORMATION
  Report Type: Spontaneous
  Country: US (occurrence: US)
  Receive Date: 20210504
  Receipt Date: 20210504
  Transmission Date: 20210717
  Serious: Yes (Other)
  Sender: FDA-Public Use
  Company Number: None

PATIENT
  Age: 74 Year
  Sex: Male
  Weight: 96.3 kg

DRUGS (11)
  1. MAMANTINE [Concomitant]
  2. XARELTO [Concomitant]
     Active Substance: RIVAROXABAN
  3. TAFINLAR [Suspect]
     Active Substance: DABRAFENIB MESYLATE
     Indication: MALIGNANT MELANOMA
     Route: 048
     Dates: start: 20210130, end: 20210504
  4. PREDNISONE. [Concomitant]
     Active Substance: PREDNISONE
  5. STOOL SOFTENER (DOCUSATE) [Concomitant]
     Active Substance: DOCUSATE
  6. TYLENOL [Concomitant]
     Active Substance: ACETAMINOPHEN
  7. PROCHLORPERAZINE. [Concomitant]
     Active Substance: PROCHLORPERAZINE
  8. ZOFRAN [Concomitant]
     Active Substance: ONDANSETRON HYDROCHLORIDE
  9. BENADRYL [Concomitant]
     Active Substance: DIPHENHYDRAMINE HYDROCHLORIDE
  10. MIRALAX [Concomitant]
     Active Substance: POLYETHYLENE GLYCOL 3350
  11. MEKINIST [Suspect]
     Active Substance: TRAMETINIB DIMETHYL SULFOXIDE
     Indication: MALIGNANT MELANOMA
     Dosage: ?          OTHER FREQUENCY:THREE TIMES WEEKLY;?
     Route: 048
     Dates: start: 20210130, end: 20210504

REACTIONS (2)
  - Disease progression [None]
  - Haemoptysis [None]

NARRATIVE: CASE EVENT DATE: 20210504
